FAERS Safety Report 8614589-X (Version None)
Quarter: 2012Q3

REPORT INFORMATION
  Report Type: 
  Country: None (occurrence: None)
  Receive Date: 20120823
  Receipt Date: 20120815
  Transmission Date: 20120928
  Serious: Yes (Hospitalization, Other)
  Sender: FDA-Public Use
  Company Number: US-ASTELLAS-2012US006981

PATIENT
  Sex: Male
  Weight: 63 kg

DRUGS (15)
  1. BACTRIM [Concomitant]
     Indication: PRODUCT USED FOR UNKNOWN INDICATION
     Dosage: 400MG/50 G DAILY
     Route: 048
     Dates: start: 20120206
  2. CALTRATE PLUS IRON AND VITAMIN D [Concomitant]
     Indication: PRODUCT USED FOR UNKNOWN INDICATION
     Dosage: 1 DF, BID
     Route: 048
     Dates: start: 20120206
  3. PREDNISONE TAB [Concomitant]
     Indication: PRODUCT USED FOR UNKNOWN INDICATION
     Dosage: 5 MG, UID/QD
     Route: 048
     Dates: start: 20120418
  4. ZETIA [Concomitant]
     Indication: PRODUCT USED FOR UNKNOWN INDICATION
     Dosage: 10 MG, UID/QD
     Route: 048
     Dates: start: 20120206
  5. PROGRAF [Suspect]
     Indication: RENAL TRANSPLANT
     Dosage: 2 MG, BID
     Route: 048
     Dates: start: 20020105
  6. PRAVASTATIN [Concomitant]
     Indication: PRODUCT USED FOR UNKNOWN INDICATION
     Dosage: 80 MG, UID/QD
     Route: 048
     Dates: start: 20120206
  7. PROGRAF [Suspect]
     Indication: PANCREAS TRANSPLANT
     Dosage: 2.5 MG, BID
     Route: 048
     Dates: start: 20120620
  8. VITAMIN D [Concomitant]
     Indication: PRODUCT USED FOR UNKNOWN INDICATION
     Dosage: 2000 IU, UID/QD
     Route: 048
     Dates: start: 20120321
  9. IMODIUM [Concomitant]
     Indication: DIARRHOEA
     Dosage: 2 MG, PRN
     Route: 048
     Dates: start: 20120213
  10. TUMS                               /00193601/ [Concomitant]
     Indication: PRODUCT USED FOR UNKNOWN INDICATION
     Dosage: 1 DF, TID
     Route: 048
     Dates: start: 20120719
  11. PREVACID [Concomitant]
     Dosage: 30 MG, UID/QD
     Route: 048
  12. CALCITROL                          /00508501/ [Concomitant]
     Indication: PRODUCT USED FOR UNKNOWN INDICATION
     Dosage: 0.25 UG, 3XWEEKLY
     Route: 048
     Dates: start: 20120607
  13. COLACE [Concomitant]
     Indication: PRODUCT USED FOR UNKNOWN INDICATION
     Dosage: 200 MG, BID
     Route: 048
     Dates: start: 20120620
  14. RAPAMUNE [Concomitant]
     Indication: PRODUCT USED FOR UNKNOWN INDICATION
     Dosage: 3 MG, UID/QD
     Route: 048
     Dates: start: 20120206
  15. NEPHROCAPS                         /01801401/ [Concomitant]
     Indication: PRODUCT USED FOR UNKNOWN INDICATION
     Dosage: 1 DF, UID/QD
     Route: 048
     Dates: start: 20120206

REACTIONS (10)
  - IRON DEFICIENCY ANAEMIA [None]
  - HYPERPARATHYROIDISM SECONDARY [None]
  - RENAL GRAFT LOSS [None]
  - PHOSPHORUS METABOLISM DISORDER [None]
  - ANAEMIA OF CHRONIC DISEASE [None]
  - FLUID OVERLOAD [None]
  - HYPERKALAEMIA [None]
  - HYPOKALAEMIA [None]
  - OFF LABEL USE [None]
  - COMPLICATIONS OF TRANSPLANTED KIDNEY [None]
